FAERS Safety Report 9031951 (Version 2)
Quarter: 2013Q1

REPORT INFORMATION
  Report Type: Spontaneous
  Country: IT (occurrence: IT)
  Receive Date: 20130125
  Receipt Date: 20130213
  Transmission Date: 20140127
  Serious: Yes (Other)
  Sender: FDA-Public Use
  Company Number: IT-JNJFOC-20130106944

PATIENT
  Age: 79 Year
  Sex: Female

DRUGS (1)
  1. DUROGESIC [Suspect]
     Indication: PRODUCT USED FOR UNKNOWN INDICATION
     Route: 062
     Dates: start: 20121115, end: 20121115

REACTIONS (7)
  - Respiratory failure [Recovering/Resolving]
  - Asthmatic crisis [Recovering/Resolving]
  - Laryngospasm [Recovering/Resolving]
  - Tachypnoea [Recovering/Resolving]
  - Agitation [Recovering/Resolving]
  - Cold sweat [Recovering/Resolving]
  - Dyspnoea [Recovering/Resolving]
